FAERS Safety Report 6379999-2 (Version None)
Quarter: 2009Q3

REPORT INFORMATION
  Report Type: 
  Country: None (occurrence: None)
  Receive Date: 20090928
  Receipt Date: 20090916
  Transmission Date: 20100115
  Serious: Yes (Disabling)
  Sender: FDA-Public Use
  Company Number: JP-ABBOTT-09P-087-0599456-00

PATIENT
  Age: 76 Year
  Sex: Male

DRUGS (4)
  1. LEUPLIN SR FOR INJECTION 11.25 MG [Suspect]
     Indication: PROSTATE CANCER STAGE III
     Route: 058
     Dates: start: 20071012, end: 20090424
  2. CASODEX [Concomitant]
     Indication: PROSTATE CANCER STAGE III
     Route: 048
     Dates: end: 20081128
  3. VESICARE [Concomitant]
     Indication: POLLAKIURIA
     Route: 048
     Dates: start: 20071012
  4. FLIVAS [Concomitant]
     Indication: DYSURIA
     Route: 048
     Dates: start: 20080104

REACTIONS (3)
  - EMPHYSEMA [None]
  - MOBILITY DECREASED [None]
  - RESPIRATORY DISORDER [None]
